FAERS Safety Report 6694190-8 (Version None)
Quarter: 2010Q2

REPORT INFORMATION
  Report Type: 
  Country: None (occurrence: None)
  Receive Date: 20100423
  Receipt Date: 20100416
  Transmission Date: 20101027
  Serious: Yes (Hospitalization)
  Sender: FDA-Public Use
  Company Number: GB-ROCHE-697136

PATIENT
  Sex: Female
  Weight: 66.5 kg

DRUGS (3)
  1. PEGINTERFERON ALFA-2A [Suspect]
     Indication: HEPATITIS C
     Route: 058
     Dates: start: 20100119
  2. RIBAVIRIN [Suspect]
     Indication: HEPATITIS C
     Route: 048
     Dates: start: 20100119
  3. BLINDED TMC435 [Suspect]
     Indication: HEPATITIS C
     Route: 048
     Dates: start: 20100119

REACTIONS (5)
  - ABDOMINAL PAIN [None]
  - NEPHROLITHIASIS [None]
  - PYREXIA [None]
  - URINARY TRACT INFECTION [None]
  - VOMITING [None]
